FAERS Safety Report 4973006-1 (Version None)
Quarter: 2006Q2

REPORT INFORMATION
  Report Type: 
  Country: None (occurrence: None)
  Receive Date: 20060414
  Receipt Date: 20060411
  Transmission Date: 20061013
  Serious: Yes (Hospitalization)
  Sender: FDA-Public Use
  Company Number: FR-GLAXOSMITHKLINE-B0419875A

PATIENT
  Age: 48 Year
  Sex: Male

DRUGS (1)
  1. ZELITREX [Suspect]
     Dosage: 500MG SIX TIMES PER DAY
     Route: 048
     Dates: start: 20060105

REACTIONS (7)
  - CEREBROVASCULAR ACCIDENT [None]
  - DIARRHOEA [None]
  - HEMIPLEGIA [None]
  - MUSCLE SPASTICITY [None]
  - MUSCULOSKELETAL STIFFNESS [None]
  - NAUSEA [None]
  - VERTIGO [None]
